FAERS Safety Report 4367537-5 (Version None)
Quarter: 2004Q2

REPORT INFORMATION
  Report Type: 
  Country: None (occurrence: None)
  Receive Date: 20040601
  Receipt Date: 20040408
  Transmission Date: 20050107
  Serious: Yes (Disabling)
  Sender: FDA-Public Use
  Company Number: GB-MERCK-0404GBR00081

PATIENT
  Age: 51 Year
  Sex: Female

DRUGS (5)
  1. FOSAMAX [Suspect]
     Indication: OSTEOPOROSIS
     Route: 048
     Dates: start: 20040209, end: 20040223
  2. ATENOLOL [Concomitant]
     Indication: HYPERTENSION
     Route: 065
  3. CALCIUM (UNSPECIFIED) [Concomitant]
     Indication: OSTEOPOROSIS
     Route: 065
     Dates: start: 20030101
  4. EVENING PRIMROSE OIL [Concomitant]
     Route: 065
     Dates: start: 20010101
  5. VITAMINS (UNSPECIFIED) [Concomitant]
     Route: 065
     Dates: start: 20010101

REACTIONS (2)
  - BONE PAIN [None]
  - MUSCULOSKELETAL STIFFNESS [None]
